FAERS Safety Report 9554994 (Version 1)
Quarter: 2013Q3

REPORT INFORMATION
  Report Type: Spontaneous
  Country: US (occurrence: None)
  Receive Date: 20130724
  Receipt Date: 20130724
  Transmission Date: 20140515
  Serious: No
  Sender: FDA-Public Use
  Company Number: PHEH2013US006141

PATIENT
  Age: 4 Year
  Sex: Male

DRUGS (10)
  1. GILENYA (FINGOLIMOD) CAPSULE [Suspect]
     Route: 048
  2. LISINOPRIL (LISINOPRIL) [Concomitant]
  3. PERCOCET (PARACETAMOL, OXYCODONE HYDROCHLORIDE) [Concomitant]
  4. PROZAC (FLUOXETINE HYDROCHLORIDE) [Concomitant]
  5. TRAZODONE (TRAZODONE) [Concomitant]
  6. GABENTIN (GABAPENTIN) [Concomitant]
  7. MULTIVITAMINS (ASCORBIC ACID, ERGOCALCIFEROL, FOLIC ACID, NICOTINAMIDE, PANTHENOL, RETINOL, RIBOFLAVIN, THIAMINE HYDROCHLORIDE) [Concomitant]
  8. VITAMIN C [Concomitant]
  9. VITAMIN E (TOCOPHEROL) [Concomitant]
  10. VITAMIN D (ERGOCALCIFEROL) [Concomitant]

REACTIONS (6)
  - Hypersomnia [None]
  - Hypokinesia [None]
  - Pain [None]
  - Somnolence [None]
  - Asthenia [None]
  - Headache [None]
